FAERS Safety Report 5669877-6 (Version None)
Quarter: 2008Q1

REPORT INFORMATION
  Report Type: 
  Country: None (occurrence: None)
  Receive Date: 20080317
  Receipt Date: 20080305
  Transmission Date: 20080703
  Serious: Yes (Other)
  Sender: FDA-Public Use
  Company Number: JP-PFIZER INC-2008021203

PATIENT
  Age: 89 Year
  Sex: Male

DRUGS (3)
  1. ZYVOX [Suspect]
  2. SEROQUEL [Suspect]
     Indication: SCHIZOPHRENIA
  3. CLEANAL [Suspect]

REACTIONS (2)
  - DEPRESSED LEVEL OF CONSCIOUSNESS [None]
  - SOMNOLENCE [None]
